FAERS Safety Report 8996739 (Version 1)
Quarter: 2012Q4

REPORT INFORMATION
  Report Type: Spontaneous
  Country: US (occurrence: None)
  Receive Date: 20121228
  Receipt Date: 20121228
  Transmission Date: 20130627
  Serious: Yes (Other)
  Sender: FDA-Public Use
  Company Number: None

PATIENT
  Sex: Male
  Weight: 58.51 kg

DRUGS (2)
  1. ADDERALL XR 30 MG [Suspect]
     Indication: ADHD
     Route: 048
     Dates: start: 2011
  2. ADDERALL XR 30 MG [Suspect]
     Indication: BEHAVIOUR DISORDER
     Route: 048
     Dates: start: 2011

REACTIONS (3)
  - Disturbance in attention [None]
  - Learning disorder [None]
  - Product substitution issue [None]
